FAERS Safety Report 4701716-X (Version None)
Quarter: 2005Q2

REPORT INFORMATION
  Report Type: 
  Country: None (occurrence: None)
  Receive Date: 20050628
  Receipt Date: 20040525
  Transmission Date: 20051028
  Serious: Yes (Other)
  Sender: FDA-Public Use
  Company Number: PHRM2004FR01927

PATIENT
  Age: 11 Year
  Sex: Female

DRUGS (3)
  1. TEGRETOL [Suspect]
     Indication: PARTIAL SEIZURES
     Dosage: 800 MG/DAY
     Route: 048
     Dates: start: 19970515
  2. URBANYL [Suspect]
     Indication: PARTIAL SEIZURES
     Dosage: 20 MG/DAY
     Route: 048
     Dates: start: 19970115
  3. KEPPRA [Concomitant]
     Indication: PARTIAL SEIZURES
     Dosage: UNK, UNK
     Route: 048
     Dates: start: 20030915, end: 20041025

REACTIONS (7)
  - BLOOD PHOSPHORUS DECREASED [None]
  - GAIT DISTURBANCE [None]
  - HYPOCALCAEMIA [None]
  - PAIN [None]
  - RICKETS [None]
  - VITAMIN D DEFICIENCY [None]
  - WALKING AID USER [None]
